FAERS Safety Report 6386348-2 (Version None)
Quarter: 2009Q3

REPORT INFORMATION
  Report Type: 
  Country: None (occurrence: None)
  Receive Date: 20090930
  Receipt Date: 20090930
  Transmission Date: 20100115
  Serious: Yes (Other)
  Sender: FDA-Public Use
  Company Number: None

PATIENT
  Age: 39 Year
  Sex: Female
  Weight: 102.5129 kg

DRUGS (1)
  1. LYRICA [Suspect]
     Indication: BIPOLAR DISORDER
     Dosage: 2 BEDTIME ONCE A DAY OTHER
     Dates: start: 20090827, end: 20090928

REACTIONS (3)
  - BURNING SENSATION [None]
  - DRUG HYPERSENSITIVITY [None]
  - OROPHARYNGEAL PAIN [None]
